FAERS Safety Report 10081988 (Version 2)
Quarter: 2014Q2

REPORT INFORMATION
  Report Type: Spontaneous
  Country: IL (occurrence: IL)
  Receive Date: 20140416
  Receipt Date: 20140416
  Transmission Date: 20141212
  Serious: Yes (Other)
  Sender: FDA-Public Use
  Company Number: IL-ABBVIE-12P-082-1004902-00

PATIENT
  Age: 65 Year
  Sex: Male

DRUGS (4)
  1. HUMIRA [Suspect]
     Indication: CROHN^S DISEASE
     Route: 058
     Dates: start: 20120529
  2. HUMIRA [Suspect]
     Dates: start: 201211
  3. RAFASSAL [Concomitant]
     Indication: CROHN^S DISEASE
  4. MEDICATION FOR THE HEART [Concomitant]
     Indication: PRODUCT USED FOR UNKNOWN INDICATION

REACTIONS (4)
  - Dizziness [Recovered/Resolved]
  - Hypotension [Recovered/Resolved]
  - Haemorrhage [Unknown]
  - Drug ineffective [Unknown]
